FAERS Safety Report 8197333-2 (Version None)
Quarter: 2012Q1

REPORT INFORMATION
  Report Type: 
  Country: None (occurrence: None)
  Receive Date: 20120307
  Receipt Date: 20120222
  Transmission Date: 20120608
  Serious: Yes (Hospitalization)
  Sender: FDA-Public Use
  Company Number: WAES 1202USA01505

PATIENT
  Age: 59 Year
  Sex: Female
  Weight: 105.2345 kg

DRUGS (5)
  1. TAXOL [Suspect]
     Indication: PRODUCT USED FOR UNKNOWN INDICATION
  2. CAP VORINOSTAT UNK [Suspect]
     Indication: OVARIAN CANCER
     Dosage: PO
     Route: 048
  3. CARBOPLATIN [Suspect]
     Indication: PRODUCT USED FOR UNKNOWN INDICATION
  4. METOPROLOL SUCCINATE [Concomitant]
  5. ASPIRIN [Concomitant]

REACTIONS (5)
  - INTESTINAL PERFORATION [None]
  - ANASTOMOTIC FISTULA [None]
  - FEMALE GENITAL TRACT FISTULA [None]
  - IMPAIRED HEALING [None]
  - ABSCESS [None]
